FAERS Safety Report 10720275 (Version 2)
Quarter: 2015Q1

REPORT INFORMATION
  Report Type: Spontaneous
  Country: US (occurrence: US)
  Receive Date: 20150119
  Receipt Date: 20150120
  Transmission Date: 20150721
  Serious: Yes (Hospitalization)
  Sender: FDA-Public Use
  Company Number: US-JNJFOC-20150109089

PATIENT
  Age: 30 Year
  Sex: Female
  Weight: 30.84 kg

DRUGS (1)
  1. REMICADE [Suspect]
     Active Substance: INFLIXIMAB
     Indication: CROHN^S DISEASE
     Route: 042
     Dates: start: 2000, end: 2004

REACTIONS (4)
  - Drug ineffective [Unknown]
  - Ileostomy [Unknown]
  - Crohn^s disease [Unknown]
  - Drug resistance [Unknown]

NARRATIVE: CASE EVENT DATE: 20010811
